FAERS Safety Report 4346525-9 (Version None)
Quarter: 2004Q2

REPORT INFORMATION
  Report Type: 
  Country: None (occurrence: None)
  Receive Date: 20040426
  Receipt Date: 20031113
  Transmission Date: 20050107
  Serious: No
  Sender: FDA-Public Use
  Company Number: US-BRISTOL-MYERS SQUIBB COMPANY-12435152

PATIENT
  Age: 79 Year
  Sex: Female
  Weight: 112 kg

DRUGS (11)
  1. CARBOPLATIN [Suspect]
     Indication: OVARIAN CANCER
     Dosage: THERAPY EVERY 3 WEEKS AS OF 22-OCT-2003. INITIATED WEEKLY THERAPY ON 12-MAR-2003.
     Route: 042
     Dates: start: 20031112, end: 20031112
  2. TAXOL [Concomitant]
     Indication: OVARIAN CANCER
     Dosage: AS OF 22-OCT-2003 THERAPY EVERY 3 WEEKS. INITIATED WEEKLY THERAPY ON 12-MAR-2003.
     Route: 042
  3. ZOFRAN [Concomitant]
     Indication: PREMEDICATION
     Route: 042
  4. DECADRON [Concomitant]
     Indication: PREMEDICATION
     Route: 042
  5. PEPCID [Concomitant]
     Indication: PREMEDICATION
     Route: 042
  6. BENADRYL [Concomitant]
     Indication: PREMEDICATION
     Route: 048
  7. EPOGEN [Concomitant]
  8. VASOTEC [Concomitant]
  9. ACTOS [Concomitant]
  10. LASIX [Concomitant]
  11. POTASSIUM SUPPLEMENTS [Concomitant]

REACTIONS (3)
  - DYSPNOEA [None]
  - PRURITUS [None]
  - RASH [None]
